FAERS Safety Report 7167091-9 (Version None)
Quarter: 2010Q4

REPORT INFORMATION
  Report Type: 
  Country: None (occurrence: None)
  Receive Date: 20101216
  Receipt Date: 20101124
  Transmission Date: 20110411
  Serious: Yes (Other)
  Sender: FDA-Public Use
  Company Number: US-BAYER-2010-003210

PATIENT
  Sex: Female
  Weight: 110 kg

DRUGS (13)
  1. YAZ [Suspect]
     Indication: ACNE
     Dosage: UNK
     Dates: start: 20080101, end: 20090101
  2. YAZ [Suspect]
     Indication: PREMENSTRUAL SYNDROME
  3. YAZ [Suspect]
  4. YASMIN [Suspect]
     Indication: ACNE
     Dosage: UNK
     Dates: start: 20080101, end: 20090101
  5. YASMIN [Suspect]
     Indication: PREMENSTRUAL SYNDROME
  6. YASMIN [Suspect]
  7. OCELLA [Suspect]
     Indication: ACNE
     Dosage: UNK
     Dates: start: 20080101, end: 20090101
  8. OCELLA [Suspect]
     Indication: PREMENSTRUAL SYNDROME
  9. OCELLA [Suspect]
  10. SULFAMETHOXAZOLE [Concomitant]
     Dosage: UNK UNK, QD
     Route: 048
  11. RANITIDINE [Concomitant]
     Dosage: 150 MG, QD
     Route: 048
  12. HYDROXYZINE [Concomitant]
     Dosage: 25 MG, BID
     Route: 048
  13. LORTAB [Concomitant]
     Indication: NAUSEA

REACTIONS (4)
  - CHOLECYSTITIS CHRONIC [None]
  - CHOLELITHIASIS [None]
  - CHOLESTEROSIS [None]
  - DEPRESSION [None]
